FAERS Safety Report 12359327 (Version 1)
Quarter: 2016Q2

REPORT INFORMATION
  Report Type: Spontaneous
  Country: US (occurrence: None)
  Receive Date: 20160511
  Receipt Date: 20160511
  Transmission Date: 20160815
  Serious: No
  Sender: FDA-Public Use
  Company Number: None

PATIENT
  Age: 59 Year
  Sex: Female

DRUGS (8)
  1. SUTENT [Suspect]
     Active Substance: SUNITINIB MALATE
     Indication: NEOPLASM MALIGNANT
     Route: 048
     Dates: start: 20160210
  2. FISH OIL [Concomitant]
     Active Substance: FISH OIL
  3. CLARITIN [Concomitant]
     Active Substance: LORATADINE
  4. CALTRATE [Concomitant]
     Active Substance: CALCIUM CARBONATE
  5. B COMP [Concomitant]
  6. GLUCOSAMINE [Concomitant]
     Active Substance: GLUCOSAMINE
  7. BIT C [Concomitant]
  8. VITAMIN B12 [Concomitant]
     Active Substance: CYANOCOBALAMIN

REACTIONS (4)
  - Epistaxis [None]
  - Sinus disorder [None]
  - Blood pressure increased [None]
  - Ear discomfort [None]

NARRATIVE: CASE EVENT DATE: 201604
